FAERS Safety Report 6203943-1 (Version None)
Quarter: 2009Q2

REPORT INFORMATION
  Report Type: 
  Country: None (occurrence: None)
  Receive Date: 20090527
  Receipt Date: 20090515
  Transmission Date: 20091009
  Serious: Yes (Hospitalization)
  Sender: FDA-Public Use
  Company Number: A0785982A

PATIENT
  Age: 74 Year
  Sex: Female
  Weight: 81.8 kg

DRUGS (5)
  1. AVANDIA [Suspect]
     Dosage: 4MG PER DAY
     Route: 048
     Dates: start: 20050101, end: 20060715
  2. TOPROL-XL [Concomitant]
     Dates: start: 19900101
  3. METOPROLOL [Concomitant]
     Dates: start: 20000101
  4. NITROGLYCERIN [Concomitant]
     Dates: start: 20040101
  5. SIMVASTATIN [Concomitant]

REACTIONS (4)
  - CARDIAC FAILURE CONGESTIVE [None]
  - CARDIOGENIC SHOCK [None]
  - CEREBROVASCULAR DISORDER [None]
  - MYOCARDIAL INFARCTION [None]
